FAERS Safety Report 6614654-2 (Version None)
Quarter: 2010Q1

REPORT INFORMATION
  Report Type: 
  Country: None (occurrence: None)
  Receive Date: 20100226
  Receipt Date: 20100216
  Transmission Date: 20100710
  Serious: No
  Sender: FDA-Public Use
  Company Number: 231159J10USA

PATIENT
  Age: 48 Year
  Sex: Male
  Weight: 79 kg

DRUGS (3)
  1. REBIF [Suspect]
     Indication: MULTIPLE SCLEROSIS
     Dosage: 44 MCG, 3 INN 1, SUBCUTANEOUS
     Route: 058
     Dates: start: 20080101
  2. LOVASTATIN [Concomitant]
  3. AMANTADINE HCL [Concomitant]

REACTIONS (1)
  - NO ADVERSE EVENT [None]
